FAERS Safety Report 7209099-0 (Version None)
Quarter: 2011Q1

REPORT INFORMATION
  Report Type: 
  Country: None (occurrence: None)
  Receive Date: 20110104
  Receipt Date: 20101230
  Transmission Date: 20110831
  Serious: Yes (Death, Hospitalization)
  Sender: FDA-Public Use
  Company Number: DE-ABBOTT-10P-062-0694326-00

PATIENT
  Age: 37 Year
  Sex: Female

DRUGS (2)
  1. SAQUINAVIR [Suspect]
     Indication: HIV INFECTION
     Dosage: 2000 MG DAILY
  2. LOPINAVIR/RITONAVIR [Suspect]
     Indication: HIV INFECTION
     Dosage: 800MG/200MG DAILY

REACTIONS (3)
  - LEUKOENCEPHALOPATHY [None]
  - BRAIN OEDEMA [None]
  - IMMUNE RECONSTITUTION SYNDROME [None]
